FAERS Safety Report 5551273-3 (Version None)
Quarter: 2007Q4

REPORT INFORMATION
  Report Type: 
  Country: None (occurrence: None)
  Receive Date: 20071210
  Receipt Date: 20071127
  Transmission Date: 20080405
  Serious: Yes (Death, Other)
  Sender: FDA-Public Use
  Company Number: 2007-01874

PATIENT
  Age: 48 Year
  Sex: Female

DRUGS (46)
  1. VELCADE [Suspect]
     Indication: MULTIPLE MYELOMA
     Dosage: 1.30 MG/M2, INTRAVENOUS
     Route: 042
     Dates: start: 20070416, end: 20070514
  2. DECADRON [Suspect]
     Indication: MULTIPLE MYELOMA
     Dosage: 4.00 MG, ORAL; 16.00 MG, ORAL; 20.00 MG, ORAL
     Route: 048
     Dates: start: 20070416, end: 20070514
  3. DECADRON [Suspect]
     Indication: MULTIPLE MYELOMA
     Dosage: 4.00 MG, ORAL; 16.00 MG, ORAL; 20.00 MG, ORAL
     Route: 048
     Dates: start: 20070514, end: 20070514
  4. DECADRON [Suspect]
     Indication: MULTIPLE MYELOMA
     Dosage: 4.00 MG, ORAL; 16.00 MG, ORAL; 20.00 MG, ORAL
     Route: 048
     Dates: start: 20070515, end: 20070515
  5. ULCERMIN               (SUCRALFATE) [Concomitant]
  6. FLUCONAZOLE [Concomitant]
  7. ZOVIRAX [Concomitant]
  8. MAGNESIUM OXIDE               (MAGNESIUM OXIDE) [Concomitant]
  9. LENDORM [Concomitant]
  10. LAXOBERON           (SODIUM PICOSULFATE) [Concomitant]
  11. ROHYPNOL          (FLUNITRAZEPAM) [Concomitant]
  12. MILTAX          (KETOPROFEN) [Concomitant]
  13. BAKTAR                 (SULFAMETHOXAZOLE, TRIMETHOPRIM) [Concomitant]
  14. MS                  ONSHIPU [Concomitant]
  15. CALONAL             (PARACETAMOL) [Concomitant]
  16. DEPAS               (ETIZOLAM) [Concomitant]
  17. PENTAZOCINE LACTATE [Concomitant]
  18. ATARAX [Concomitant]
  19. LECICARBON (SODIUM BICARBONATE, LECITHIN, SODIUM PHOSPHATE MONOBASIC ( [Concomitant]
  20. MAXIPIME [Concomitant]
  21. BIKLIN                    (SULFAMETHOXAZOLE, TRIMETHOPRIM) [Concomitant]
  22. RED BLOOD CELLS [Concomitant]
  23. PLATELETS [Concomitant]
  24. HYDROPHILIC OINTMENT [Concomitant]
  25. ZOMETA [Concomitant]
  26. CHLOR-TRIMETON [Concomitant]
  27. GLYCERIN                  (GLYCEROL) [Concomitant]
  28. PRIMPERAN TAB [Concomitant]
  29. NOVAMIN                     (PROCHLORPERAZINE) [Concomitant]
  30. LACTEC (SODIUM LACTATE, POTASSIUM CHLORIDE, CALCIUM CHLORIDE ANHYDROUS [Concomitant]
  31. SOLDEMA 3A (SODIUM LACTATE, POTASSIUM CHLORIDE, CARBOHYDRATES NOS, SOD [Concomitant]
  32. PANTOL               (DEXPANTHENOL) [Concomitant]
  33. SANDOSTATIN [Concomitant]
  34. TOBRAMYCIN SULFATE [Concomitant]
  35. CEFTAZIDIME [Concomitant]
  36. CONTOMIN                         (CHLORPORMAZINE HYDROCHLORIDE) [Concomitant]
  37. KAYTWO N                    (MENATETRENONE) [Concomitant]
  38. NEOLAMIN MULTI V                   (VITAMINS NOS) [Concomitant]
  39. PN TWIN (AMINO ACIDS NOS, CARBOHYDRATES NOS, ELECTROLYTES ) [Concomitant]
  40. ELEMENMIC  (MINERALS NOS) [Concomitant]
  41. XYLOCAINE [Concomitant]
  42. SERENACE                     (HALOPERIDOL) [Concomitant]
  43. SOLDEM 1                      (GLUCOSE, SODIUM LACTATE, SODIUM CHLORID [Concomitant]
  44. VITAMIN PREPARATION COMPOUND               (VITAMINS NOS) [Concomitant]
  45. FENTANYL CITRATE [Concomitant]
  46. RESTAMIN                     (DIPHENHYDRAMINE) [Concomitant]

REACTIONS (32)
  - ARTHRALGIA [None]
  - ASCITES [None]
  - ASPARTATE AMINOTRANSFERASE INCREASED [None]
  - ATELECTASIS [None]
  - BLOOD CREATININE INCREASED [None]
  - BLOOD LACTATE DEHYDROGENASE INCREASED [None]
  - BLOOD PHOSPHORUS INCREASED [None]
  - BLOOD SODIUM DECREASED [None]
  - BLOOD UREA INCREASED [None]
  - C-REACTIVE PROTEIN INCREASED [None]
  - DYSARTHRIA [None]
  - ERYTHEMA [None]
  - GAMMA-GLUTAMYLTRANSFERASE INCREASED [None]
  - HAEMOGLOBIN DECREASED [None]
  - HEADACHE [None]
  - HERPES SIMPLEX [None]
  - HYPERURICAEMIA [None]
  - HYPOAESTHESIA [None]
  - HYPOKALAEMIA [None]
  - HYPONATRAEMIA [None]
  - HYPOPHOSPHATAEMIA [None]
  - ILEUS [None]
  - LYMPHOPENIA [None]
  - MALIGNANT NEOPLASM PROGRESSION [None]
  - PETECHIAE [None]
  - PLATELET COUNT DECREASED [None]
  - PLEURAL EFFUSION [None]
  - PULMONARY OEDEMA [None]
  - PYREXIA [None]
  - SENSORY DISTURBANCE [None]
  - VOMITING [None]
  - WHITE BLOOD CELL COUNT DECREASED [None]
